FAERS Safety Report 5294531-2 (Version None)
Quarter: 2007Q2

REPORT INFORMATION
  Report Type: 
  Country: None (occurrence: None)
  Receive Date: 20070409
  Receipt Date: 20070409
  Transmission Date: 20071010
  Serious: Yes (Hospitalization)
  Sender: FDA-Public Use
  Company Number: None

PATIENT
  Age: 30 Year
  Sex: Male
  Weight: 76.6579 kg

DRUGS (2)
  1. BOCA METHSCOPOLAMINE 5MG BOCA PHARMACAL, INC. [Suspect]
     Indication: FOOD POISONING
     Dosage: 5MG 1PILL 2 X DAY PO
     Route: 048
     Dates: start: 20070220, end: 20070223
  2. PAMINE FORTE [Suspect]
     Indication: COLITIS
     Dosage: 5MG 1PILL 2 X DAY PO
     Route: 048
     Dates: start: 20070309, end: 20070311

REACTIONS (11)
  - ANXIETY [None]
  - COLITIS [None]
  - CONSTIPATION [None]
  - DRY MOUTH [None]
  - EYE DISORDER [None]
  - HEART RATE INCREASED [None]
  - ILL-DEFINED DISORDER [None]
  - IMPAIRED DRIVING ABILITY [None]
  - MEMORY IMPAIRMENT [None]
  - MYDRIASIS [None]
  - VISUAL DISTURBANCE [None]
